FAERS Safety Report 7117793-5 (Version None)
Quarter: 2010Q4

REPORT INFORMATION
  Report Type: 
  Country: None (occurrence: None)
  Receive Date: 20101123
  Receipt Date: 20101112
  Transmission Date: 20110411
  Serious: Yes (Other)
  Sender: FDA-Public Use
  Company Number: US-BIOGENIDEC-2010BI040431

PATIENT
  Age: 68 Year
  Sex: Male
  Weight: 86 kg

DRUGS (4)
  1. AVONEX [Suspect]
     Indication: MULTIPLE SCLEROSIS
     Route: 030
     Dates: start: 20000101, end: 20030101
  2. AVONEX [Suspect]
     Route: 042
     Dates: start: 20030101
  3. HYDROCODONE [Concomitant]
     Indication: SPINAL FRACTURE
  4. HYDROCODONE [Concomitant]
     Indication: HEADACHE

REACTIONS (17)
  - ABNORMAL BEHAVIOUR [None]
  - APHASIA [None]
  - BALANCE DISORDER [None]
  - CONVULSION [None]
  - DEPRESSED MOOD [None]
  - DISORIENTATION [None]
  - DIZZINESS [None]
  - FALL [None]
  - FATIGUE [None]
  - HEADACHE [None]
  - HYPERSOMNIA [None]
  - INCOHERENT [None]
  - INCORRECT STORAGE OF DRUG [None]
  - INDIFFERENCE [None]
  - LISTLESS [None]
  - SPEECH DISORDER [None]
  - TREMOR [None]
